FAERS Safety Report 4491412-9 (Version None)
Quarter: 2004Q4

REPORT INFORMATION
  Report Type: 
  Country: None (occurrence: None)
  Receive Date: 20041101
  Receipt Date: 20041101
  Transmission Date: 20050328
  Serious: Yes (Life-Threatening)
  Sender: FDA-Public Use
  Company Number: None

PATIENT
  Age: 49 Year
  Sex: Male

DRUGS (2)
  1. STAVUDINE [Suspect]
     Dosage: 30MG BID ORAL
     Route: 048
  2. EFAVIRENZ 600MG [Suspect]
     Dosage: 600MG AT BEDTIME ORAL
     Route: 048

REACTIONS (1)
  - LACTIC ACIDOSIS [None]
